FAERS Safety Report 4737958-7 (Version None)
Quarter: 2005Q3

REPORT INFORMATION
  Report Type: 
  Country: None (occurrence: None)
  Receive Date: 20050809
  Receipt Date: 20050728
  Transmission Date: 20060218
  Serious: Yes (Hospitalization)
  Sender: FDA-Public Use
  Company Number: BR-BRISTOL-MYERS SQUIBB COMPANY-13057526

PATIENT
  Age: 37 Year
  Sex: Female
  Weight: 37 kg

DRUGS (5)
  1. REYATAZ [Suspect]
     Indication: HIV INFECTION
     Route: 048
     Dates: start: 20041101
  2. TENOFOVIR [Concomitant]
  3. RITONAVIR [Concomitant]
  4. LAMIVUDINE [Concomitant]
  5. HIDANTAL [Concomitant]
     Indication: CONVULSION

REACTIONS (3)
  - ARTHRALGIA [None]
  - MYALGIA [None]
  - NOCARDIOSIS [None]
